FAERS Safety Report 5087772-0 (Version None)
Quarter: 2006Q3

REPORT INFORMATION
  Report Type: 
  Country: None (occurrence: None)
  Receive Date: 20060824
  Receipt Date: 20060821
  Transmission Date: 20061208
  Serious: Yes (Other)
  Sender: FDA-Public Use
  Company Number: US-JNJFOC-20060804802

PATIENT
  Sex: Male
  Weight: 111.13 kg

DRUGS (4)
  1. REMICADE [Suspect]
     Indication: SARCOIDOSIS
     Route: 042
  2. MINOCYCLINE HCL [Concomitant]
  3. CIPRO [Concomitant]
  4. PREDNISONE [Concomitant]

REACTIONS (1)
  - OSTEONECROSIS [None]
